FAERS Safety Report 25077020 (Version 3)
Quarter: 2025Q2

REPORT INFORMATION
  Report Type: Report from Study
  Country: US (occurrence: US)
  Receive Date: 20250314
  Receipt Date: 20250418
  Transmission Date: 20250716
  Serious: Yes (Hospitalization, Other)
  Sender: ABBVIE
  Company Number: US-ABBVIE-6177041

PATIENT
  Age: 29 Year
  Sex: Female
  Weight: 57 kg

DRUGS (43)
  1. BOTOX [Suspect]
     Active Substance: ONABOTULINUMTOXINA
     Indication: Migraine
     Route: 030
     Dates: start: 2023, end: 2023
  2. BOTOX [Suspect]
     Active Substance: ONABOTULINUMTOXINA
     Indication: Migraine
     Route: 030
     Dates: start: 2015, end: 2015
  3. FIORICET [Concomitant]
     Active Substance: ACETAMINOPHEN\BUTALBITAL\CAFFEINE
     Indication: Migraine prophylaxis
  4. ASPIRIN [Concomitant]
     Active Substance: ASPIRIN
     Indication: Anticoagulant therapy
  5. MONTELUKAST [Concomitant]
     Active Substance: MONTELUKAST
     Indication: Mast cell activation syndrome
  6. TIZANIDINE [Concomitant]
     Active Substance: TIZANIDINE
     Indication: Muscle spasms
  7. Hyoscamine [Concomitant]
     Indication: Gastric pH decreased
  8. SPIRONOLACTONE [Concomitant]
     Active Substance: SPIRONOLACTONE
     Indication: Blood potassium decreased
  9. DDAVP [Concomitant]
     Active Substance: DESMOPRESSIN ACETATE
     Indication: Blood pressure decreased
  10. VALPROIC ACID [Concomitant]
     Active Substance: VALPROIC ACID
     Indication: Migraine prophylaxis
  11. FAMOTIDINE [Concomitant]
     Active Substance: FAMOTIDINE
     Indication: Mast cell activation syndrome
  12. REYVOW [Concomitant]
     Active Substance: LASMIDITAN
     Indication: Migraine prophylaxis
  13. FLUCONAZOLE [Concomitant]
     Active Substance: FLUCONAZOLE
     Indication: Fungal infection
  14. PLAVIX [Concomitant]
     Active Substance: CLOPIDOGREL BISULFATE
     Indication: Product used for unknown indication
  15. LIDOCAINE [Concomitant]
     Active Substance: LIDOCAINE
     Indication: Pain
     Route: 042
  16. ANNOVERA [Concomitant]
     Active Substance: ETHINYL ESTRADIOL\SEGESTERONE ACETATE
     Indication: Menstrual cycle management
  17. POTASSIUM [Concomitant]
     Active Substance: POTASSIUM
     Indication: Mineral supplementation
  18. VITAMIN B1 [Concomitant]
     Active Substance: THIAMINE HYDROCHLORIDE
     Indication: Product used for unknown indication
     Route: 042
  19. FEXOFENADINE [Concomitant]
     Active Substance: FEXOFENADINE HYDROCHLORIDE
     Indication: Mast cell activation syndrome
  20. ATENOLOL [Concomitant]
     Active Substance: ATENOLOL
     Indication: Tachycardia
     Dosage: 50 MILLIGRAM
     Route: 065
  21. MIDODRINE [Concomitant]
     Active Substance: MIDODRINE
     Indication: Blood pressure management
  22. PHENERGAN [Concomitant]
     Active Substance: PROMETHAZINE HYDROCHLORIDE
     Indication: Nausea
  23. CLOBETASOL [Concomitant]
     Active Substance: CLOBETASOL
     Indication: Eczema
  24. METHADONE [Concomitant]
     Active Substance: METHADONE HYDROCHLORIDE
     Indication: Pain
  25. PRAZOSIN [Concomitant]
     Active Substance: PRAZOSIN
     Indication: Post-traumatic stress disorder
  26. XOLAIR [Concomitant]
     Active Substance: OMALIZUMAB
     Indication: Mast cell activation syndrome
  27. OMEPRAZOLE [Concomitant]
     Active Substance: OMEPRAZOLE
     Indication: Gastrooesophageal reflux disease
  28. LIDOCAINE [Concomitant]
     Active Substance: LIDOCAINE
     Indication: Vulvovaginal pruritus
     Route: 065
  29. EMGALITY [Suspect]
     Active Substance: GALCANEZUMAB-GNLM
     Indication: Product used for unknown indication
     Route: 065
  30. PREDNISONE [Concomitant]
     Active Substance: PREDNISONE
     Indication: Migraine prophylaxis
  31. ECABET SODIUM [Concomitant]
     Active Substance: ECABET SODIUM
     Indication: Gastrointestinal disorder
  32. CLONIDINE [Concomitant]
     Active Substance: CLONIDINE
     Indication: Hypertension
  33. VITAMIN B12 [Concomitant]
     Active Substance: CYANOCOBALAMIN
     Indication: Product used for unknown indication
     Route: 030
  34. AMBIEN [Concomitant]
     Active Substance: ZOLPIDEM TARTRATE
     Indication: Insomnia
  35. ALCAINE [Concomitant]
     Active Substance: PROPARACAINE HYDROCHLORIDE
     Indication: Ophthalmic migraine
  36. SCOPOLAMINE [Concomitant]
     Active Substance: SCOPOLAMINE
     Indication: Nausea
  37. BENADRYL [Concomitant]
     Active Substance: DIPHENHYDRAMINE HYDROCHLORIDE
     Indication: Migraine prophylaxis
  38. ATARAX [Concomitant]
     Active Substance: HYDROXYZINE HYDROCHLORIDE
     Indication: Mast cell activation syndrome
  39. LYRICA [Concomitant]
     Active Substance: PREGABALIN
     Indication: Neuralgia
  40. TRINTELLIX [Concomitant]
     Active Substance: VORTIOXETINE HYDROBROMIDE
     Indication: Major depression
  41. DIAZEPAM [Concomitant]
     Active Substance: DIAZEPAM
     Indication: Anxiety
  42. CORLANOR [Concomitant]
     Active Substance: IVABRADINE HYDROCHLORIDE
     Indication: Heart rate increased
  43. LIDOCAINE VISCOUS [Concomitant]
     Active Substance: LIDOCAINE HYDROCHLORIDE
     Indication: Symphysiolysis

REACTIONS (18)
  - Catheterisation cardiac [Not Recovered/Not Resolved]
  - Postural orthostatic tachycardia syndrome [Not Recovered/Not Resolved]
  - Atrial enlargement [Not Recovered/Not Resolved]
  - Cardiac septal hypertrophy [Not Recovered/Not Resolved]
  - Impaired gastric emptying [Recovering/Resolving]
  - Left ventricular dysfunction [Not Recovered/Not Resolved]
  - Retrograde amnesia [Recovered/Resolved]
  - Osteonecrosis [Recovering/Resolving]
  - Fall [Recovered/Resolved]
  - Migraine [Not Recovered/Not Resolved]
  - Confusional state [Not Recovered/Not Resolved]
  - Cardiac valve disease [Not Recovered/Not Resolved]
  - Speech disorder [Not Recovered/Not Resolved]
  - Vomiting [Recovered/Resolved]
  - Daydreaming [Recovered/Resolved]
  - Orthostatic hypotension [Not Recovered/Not Resolved]
  - Coronary artery occlusion [Not Recovered/Not Resolved]
  - Post procedural complication [Not Recovered/Not Resolved]

NARRATIVE: CASE EVENT DATE: 20170101
